FAERS Safety Report 21323195 (Version 3)
Quarter: 2022Q4

REPORT INFORMATION
  Report Type: Spontaneous
  Country: PR (occurrence: PR)
  Receive Date: 20220912
  Receipt Date: 20221014
  Transmission Date: 20230112
  Serious: No
  Sender: FDA-Public Use
  Company Number: PR-PFIZER INC-PV202200058938

PATIENT
  Age: 7 Year
  Sex: Male

DRUGS (1)
  1. GENOTROPIN [Suspect]
     Active Substance: SOMATROPIN
     Dosage: 0.8 MG (6 TIMES A WEEK)
     Dates: start: 202208

REACTIONS (2)
  - Pyrexia [Unknown]
  - Device use issue [Unknown]

NARRATIVE: CASE EVENT DATE: 20220906
